FAERS Safety Report 5568442-9 (Version None)
Quarter: 2007Q4

REPORT INFORMATION
  Report Type: 
  Country: None (occurrence: None)
  Receive Date: 20071220
  Receipt Date: 20071214
  Transmission Date: 20080405
  Serious: Yes (Hospitalization)
  Sender: FDA-Public Use
  Company Number: SK-GENENTECH-242603

PATIENT
  Sex: Female
  Weight: 52 kg

DRUGS (8)
  1. RITUXIMAB [Suspect]
     Indication: RHEUMATOID ARTHRITIS
     Dosage: 1000 MG, UNK
     Route: 042
     Dates: start: 20061114
  2. METHOTREXATE [Concomitant]
     Indication: RHEUMATOID ARTHRITIS
     Dosage: 12.5 MG, 1/WEEK
     Route: 048
     Dates: start: 20010301, end: 20071012
  3. PREDNISOLONE [Concomitant]
     Indication: RHEUMATOID ARTHRITIS
     Dosage: 7.5 MG, QD
     Route: 048
     Dates: start: 20050601
  4. ALENDRONATE SODIUM [Concomitant]
     Indication: DRUG USE FOR UNKNOWN INDICATION
     Dosage: 70 MG, 1/WEEK
  5. CALCIUM [Concomitant]
     Indication: DRUG USE FOR UNKNOWN INDICATION
     Dosage: 250 MG, UNK
  6. NATRIUM [Concomitant]
     Indication: DRUG USE FOR UNKNOWN INDICATION
     Dosage: 600 MG, UNK
  7. OMEPRAZOLE [Concomitant]
     Indication: DRUG USE FOR UNKNOWN INDICATION
     Dosage: 40 MG, UNK
  8. MELOXICAM [Concomitant]
     Indication: DRUG USE FOR UNKNOWN INDICATION
     Dosage: 15 MG, UNK

REACTIONS (2)
  - HODGKIN'S DISEASE [None]
  - LEUKOCYTOSIS [None]
